FAERS Safety Report 8401202-X (Version None)
Quarter: 2012Q2

REPORT INFORMATION
  Report Type: 
  Country: None (occurrence: None)
  Receive Date: 20120525
  Receipt Date: 20120511
  Transmission Date: 20120825
  Serious: Yes (Other)
  Sender: FDA-Public Use
  Company Number: EU-2012-10150

PATIENT
  Age: 47 Year
  Sex: Male

DRUGS (5)
  1. CEFTAZIDIME [Concomitant]
  2. HYPETONIC SALINE SOLUTION (HYPERTONIC SALINE SOLUTION) [Concomitant]
  3. ELECTROLYTE SOLUTIONS [Concomitant]
  4. SAMSCA [Suspect]
     Indication: INAPPROPRIATE ANTIDIURETIC HORMONE SECRETION
     Dosage: 15 MG MILLIGRAM(S), DAILY DOSE; 15 MG MILLIGRAM(S), DAILY DOSE
  5. VANCOMYCIN [Concomitant]

REACTIONS (4)
  - LETHARGY [None]
  - BLOOD SODIUM DECREASED [None]
  - CONVULSION [None]
  - RAPID CORRECTION OF HYPONATRAEMIA [None]
